FAERS Safety Report 13646897 (Version 1)
Quarter: 2017Q2

REPORT INFORMATION
  Report Type: Spontaneous
  Country: TR (occurrence: TR)
  Receive Date: 20170613
  Receipt Date: 20170613
  Transmission Date: 20170830
  Serious: Yes (Death)
  Sender: FDA-Public Use
  Company Number: PHHY2017TR085138

PATIENT
  Age: 18 Year
  Sex: Male

DRUGS (8)
  1. CICLOSPORIN [Suspect]
     Active Substance: CYCLOSPORINE
     Indication: PROPHYLAXIS AGAINST GRAFT VERSUS HOST DISEASE
     Route: 065
  2. COTRIMOXAZOLE [Concomitant]
     Active Substance: SULFAMETHOXAZOLE\TRIMETHOPRIM
     Indication: ANTIFUNGAL PROPHYLAXIS
     Route: 065
  3. BUSULFAN. [Concomitant]
     Active Substance: BUSULFAN
     Indication: BONE MARROW CONDITIONING REGIMEN
     Route: 065
  4. CYCLOPHOSPHAMIDE. [Concomitant]
     Active Substance: CYCLOPHOSPHAMIDE
     Indication: BONE MARROW CONDITIONING REGIMEN
     Route: 065
  5. ACYCLOVIR. [Concomitant]
     Active Substance: ACYCLOVIR
     Indication: ANTIVIRAL PROPHYLAXIS
     Route: 065
  6. ANTITHYMOCYTE IMMUNOGLOBULIN [Concomitant]
     Active Substance: THYMOCYTE IMMUNE GLOBULIN NOS
     Indication: BONE MARROW CONDITIONING REGIMEN
     Route: 065
  7. IMMUNOGLOBULIN I.V [Concomitant]
     Active Substance: HUMAN IMMUNOGLOBULIN G
     Indication: IMMUNOGLOBULIN THERAPY
     Route: 042
  8. FLUCONAZOLE. [Concomitant]
     Active Substance: FLUCONAZOLE
     Indication: ANTIFUNGAL PROPHYLAXIS
     Route: 065

REACTIONS (1)
  - Acute graft versus host disease in skin [Fatal]
